FAERS Safety Report 5446514-7 (Version None)
Quarter: 2007Q3

REPORT INFORMATION
  Report Type: 
  Country: None (occurrence: None)
  Receive Date: 20070907
  Receipt Date: 20070827
  Transmission Date: 20080115
  Serious: Yes (Other)
  Sender: FDA-Public Use
  Company Number: DE-JNJFOC-20070805410

PATIENT
  Sex: Female

DRUGS (2)
  1. TOPAMAX [Suspect]
     Dosage: IN THE MORNING AND IN THE EVENING, A HALF TABLET EACH
  2. TOPAMAX [Suspect]
     Indication: MIGRAINE PROPHYLAXIS

REACTIONS (3)
  - INCORRECT DOSE ADMINISTERED [None]
  - PSYCHOMOTOR SKILLS IMPAIRED [None]
  - PSYCHOTIC DISORDER [None]
